FAERS Safety Report 24037796 (Version 2)
Quarter: 2024Q3

REPORT INFORMATION
  Report Type: Spontaneous
  Country: JP (occurrence: JP)
  Receive Date: 20240702
  Receipt Date: 20240717
  Transmission Date: 20241016
  Serious: No
  Sender: SANOFI AVENTIS
  Company Number: JP-SAKK-2024SA173470AA

PATIENT
  Age: 40 Year
  Sex: Male

DRUGS (1)
  1. FABRAZYME [Suspect]
     Active Substance: AGALSIDASE BETA
     Indication: Product used for unknown indication
     Dosage: UNK
     Route: 041
     Dates: start: 20220601, end: 20240315

REACTIONS (1)
  - No adverse event [Unknown]
